FAERS Safety Report 20482335 (Version 1)
Quarter: 2022Q1

REPORT INFORMATION
  Report Type: Spontaneous
  Country: US (occurrence: US)
  Receive Date: 20220216
  Receipt Date: 20220216
  Transmission Date: 20220423
  Serious: No
  Sender: FDA-Public Use
  Company Number: US-SUN PHARMACEUTICAL INDUSTRIES LTD-2021R1-279067

PATIENT
  Sex: Female
  Weight: 61.23 kg

DRUGS (1)
  1. METOPROLOL [Suspect]
     Active Substance: METOPROLOL
     Indication: Tachycardia
     Dosage: 8.5 MILLIGRAM(OR ONE QUARTER OF 25 MG THIS MORNING)
     Route: 065
     Dates: end: 202001

REACTIONS (1)
  - Wrong technique in product usage process [Unknown]
